FAERS Safety Report 7352710-4 (Version None)
Quarter: 2011Q1

REPORT INFORMATION
  Report Type: 
  Country: None (occurrence: None)
  Receive Date: 20110310
  Receipt Date: 20110310
  Transmission Date: 20110831
  Serious: Yes (Other)
  Sender: FDA-Public Use
  Company Number: None

PATIENT
  Age: 80 Year
  Sex: Male
  Weight: 68.0396 kg

DRUGS (1)
  1. SEROQUEL [Suspect]
     Indication: AGITATION
     Dates: start: 20110204, end: 20110225

REACTIONS (19)
  - SPEECH DISORDER [None]
  - MUSCULOSKELETAL STIFFNESS [None]
  - AGITATION [None]
  - DYSPHAGIA [None]
  - MUSCLE RIGIDITY [None]
  - HALLUCINATION [None]
  - TREMOR [None]
  - TOOTHACHE [None]
  - DYSSTASIA [None]
  - FAECAL INCONTINENCE [None]
  - URINARY INCONTINENCE [None]
  - BRUXISM [None]
  - LOSS OF CONTROL OF LEGS [None]
  - INSOMNIA [None]
  - HEADACHE [None]
  - TONGUE BITING [None]
  - EYE DISORDER [None]
  - DYSKINESIA [None]
  - ABASIA [None]
